FAERS Safety Report 4585220-8 (Version None)
Quarter: 2005Q1

REPORT INFORMATION
  Report Type: 
  Country: None (occurrence: None)
  Receive Date: 20050217
  Receipt Date: 20050125
  Transmission Date: 20050727
  Serious: No
  Sender: FDA-Public Use
  Company Number: US-GLAXOSMITHKLINE-A0542173A

PATIENT
  Sex: Female

DRUGS (3)
  1. WELLBUTRIN XL [Suspect]
     Indication: DEPRESSION
     Dosage: 500MG PER DAY
     Route: 048
     Dates: start: 20041226, end: 20050101
  2. URINE INCONTINENCE MEDICATION [Suspect]
     Route: 065
  3. EFFEXOR [Concomitant]

REACTIONS (1)
  - PHOTOSENSITIVITY REACTION [None]
